FAERS Safety Report 19512121 (Version 3)
Quarter: 2021Q3

REPORT INFORMATION
  Report Type: Report from Study
  Country: CA (occurrence: CA)
  Receive Date: 20210709
  Receipt Date: 20210901
  Transmission Date: 20211014
  Serious: No
  Sender: FDA-Public Use
  Company Number: CA-SA-2021SA224033

PATIENT
  Age: 77 Year
  Sex: Female

DRUGS (6)
  1. DUPILUMAB [Suspect]
     Active Substance: DUPILUMAB
     Indication: DERMATITIS ATOPIC
     Dosage: 600 MG, 1X
     Route: 058
  2. ULTRAVATE [BETAMETHASONE DIPROPIONATE] [Concomitant]
     Dosage: UNK
  3. DUPILUMAB [Suspect]
     Active Substance: DUPILUMAB
     Dosage: 300 MG, QOW
     Route: 058
     Dates: start: 20210421, end: 2021
  4. GABAPENTIN. [Concomitant]
     Active Substance: GABAPENTIN
     Dosage: UNK
  5. CLOBEX [CLOBETASOL PROPIONATE] [Concomitant]
     Dosage: UNK
  6. LUXIQ [Concomitant]
     Active Substance: BETAMETHASONE VALERATE
     Dosage: UNK

REACTIONS (5)
  - Dyspnoea [Recovered/Resolved]
  - Cough [Not Recovered/Not Resolved]
  - Seasonal allergy [Not Recovered/Not Resolved]
  - Rash [Not Recovered/Not Resolved]
  - Dysphonia [Not Recovered/Not Resolved]
